FAERS Safety Report 16848514 (Version 1)
Quarter: 2019Q3

REPORT INFORMATION
  Report Type: Spontaneous
  Country: CA (occurrence: CA)
  Receive Date: 20190925
  Receipt Date: 20190925
  Transmission Date: 20191005
  Serious: Yes (Other)
  Sender: FDA-Public Use
  Company Number: CA-AUROBINDO-AUR-APL-2019-062503

PATIENT
  Sex: Female

DRUGS (3)
  1. FLUDROCORTISONE ACETATE. [Concomitant]
     Active Substance: FLUDROCORTISONE ACETATE
     Indication: ORTHOSTATIC HYPERTENSION
     Dosage: UNK
     Route: 065
  2. APTIOM [Suspect]
     Active Substance: ESLICARBAZEPINE ACETATE
     Indication: SEIZURE
     Dosage: UNK
     Route: 048
  3. CITALOPRAM [Suspect]
     Active Substance: CITALOPRAM HYDROBROMIDE
     Indication: DEPRESSION
     Dosage: UNK
     Route: 065

REACTIONS (3)
  - Seizure [Recovered/Resolved]
  - Dry skin [Recovered/Resolved]
  - Hyponatraemia [Recovered/Resolved]
